FAERS Safety Report 26090235 (Version 1)
Quarter: 2025Q4

REPORT INFORMATION
  Report Type: Spontaneous
  Country: US (occurrence: US)
  Receive Date: 20251126
  Receipt Date: 20251126
  Transmission Date: 20260118
  Serious: No
  Sender: TOLMAR
  Company Number: US-Tolmar-TLM-2025-08655

PATIENT
  Age: 75 Year

DRUGS (3)
  1. ELIGARD [Suspect]
     Active Substance: LEUPROLIDE ACETATE
     Indication: Hormone-refractory prostate cancer
     Dosage: NOT ADMINISTERED ?NDC: 6293522710?GTIN: 00362935227106?SN: 3035284343402?LOT NUMBER: 15187RCUS EXP:
     Dates: start: 20251113
  2. ELIGARD [Suspect]
     Active Substance: LEUPROLIDE ACETATE
     Dosage: REPLACEMENT DOSE
     Dates: start: 20251113
  3. DEVICE [Suspect]
     Active Substance: DEVICE
     Indication: Hormone-refractory prostate cancer
     Dosage: NOT ADMINISTERED ?NDC: 6293522710?GTIN: 00362935227106?SN: 3035284343402?LOT NUMBER: 15187RCUS EXP:

REACTIONS (3)
  - Intercepted product administration error [Unknown]
  - Device leakage [Unknown]
  - Device breakage [Unknown]

NARRATIVE: CASE EVENT DATE: 20251113
